FAERS Safety Report 18259109 (Version 5)
Quarter: 2020Q4

REPORT INFORMATION
  Report Type: Report from Study
  Country: US (occurrence: US)
  Receive Date: 20200911
  Receipt Date: 20201029
  Transmission Date: 20210113
  Serious: Yes (Life-Threatening, Hospitalization, Other)
  Sender: FDA-Public Use
  Company Number: US-BRISTOL-MYERS SQUIBB COMPANY-BMS-2020-073565

PATIENT
  Age: 73 Year
  Sex: Male
  Weight: 93.5 kg

DRUGS (1)
  1. NIVOLUMAB [Suspect]
     Active Substance: NIVOLUMAB
     Indication: PANCREATIC CARCINOMA
     Dosage: UNK, Q2WK OVER 30 MINUTES
     Route: 042
     Dates: start: 20200901, end: 20200901

REACTIONS (8)
  - Pulmonary embolism [Unknown]
  - Immune-mediated pneumonitis [Unknown]
  - Immune-mediated myocarditis [Unknown]
  - Pneumonia [Unknown]
  - Sepsis [Unknown]
  - Pneumonia bacterial [Unknown]
  - Pneumonia viral [Unknown]
  - Liver function test abnormal [Unknown]

NARRATIVE: CASE EVENT DATE: 20200908
